FAERS Safety Report 4950281-0 (Version None)
Quarter: 2006Q1

REPORT INFORMATION
  Report Type: 
  Country: None (occurrence: None)
  Receive Date: 20060322
  Receipt Date: 20060316
  Transmission Date: 20060701
  Serious: Yes (Congenital Anomaly)
  Sender: FDA-Public Use
  Company Number: FR-AVENTIS-200611019FR

PATIENT
  Age: 1 Year
  Sex: Female

DRUGS (1)
  1. BIRODOGYL [Suspect]
     Route: 064

REACTIONS (2)
  - CATARACT CONGENITAL [None]
  - DRUG EXPOSURE DURING PREGNANCY [None]
